FAERS Safety Report 13451721 (Version 1)
Quarter: 2017Q2

REPORT INFORMATION
  Report Type: Spontaneous
  Country: US (occurrence: US)
  Receive Date: 20170417
  Receipt Date: 20170417
  Transmission Date: 20170830
  Serious: No
  Sender: FDA-Public Use
  Company Number: None

PATIENT
  Age: 43 Year
  Sex: Female

DRUGS (1)
  1. IMATINIB 400MG SUN PHARMACEUTICALS [Suspect]
     Active Substance: IMATINIB
     Indication: WHITE BLOOD CELL DISORDER
     Route: 048
     Dates: start: 20161025, end: 20170321

REACTIONS (2)
  - Peripheral arterial occlusive disease [None]
  - Muscle spasms [None]

NARRATIVE: CASE EVENT DATE: 20170321
